FAERS Safety Report 14190973 (Version 1)
Quarter: 2017Q4

REPORT INFORMATION
  Report Type: Spontaneous
  Country: US (occurrence: None)
  Receive Date: 20171114
  Receipt Date: 20171114
  Transmission Date: 20180321
  Serious: No
  Sender: FDA-Public Use
  Company Number: None

PATIENT
  Sex: Female

DRUGS (1)
  1. TACROLIMUS 1MG ACCORD [Suspect]
     Active Substance: TACROLIMUS
     Indication: PROTEINURIA
     Dosage: 5MG THREE TABLETS IN THE MORNING AND 2 TABLETS IN THE BY MOUTH
     Route: 048
     Dates: start: 20171007, end: 20171113

REACTIONS (3)
  - Dizziness [None]
  - Emotional disorder [None]
  - Syncope [None]
